FAERS Safety Report 25371655 (Version 6)
Quarter: 2025Q2

REPORT INFORMATION
  Report Type: Spontaneous
  Country: FR (occurrence: FR)
  Receive Date: 20250529
  Receipt Date: 20250620
  Transmission Date: 20250716
  Serious: Yes (Other)
  Sender: BIOGEN
  Company Number: FR-BIOGEN-2025BI01312263

PATIENT
  Age: 62 Year
  Sex: Female

DRUGS (11)
  1. TYSABRI [Suspect]
     Active Substance: NATALIZUMAB
     Indication: Multiple sclerosis
     Dosage: 104 TREATMENT CYCLES
     Route: 050
     Dates: start: 2010, end: 201904
  2. KESIMPTA [Concomitant]
     Active Substance: OFATUMUMAB
     Indication: Relapsing-remitting multiple sclerosis
     Route: 050
     Dates: start: 20240328, end: 202409
  3. DALFAMPRIDINE [Concomitant]
     Active Substance: DALFAMPRIDINE
     Indication: Product used for unknown indication
     Dosage: TWO TABLETS PER DAY AT 12-HOUR INTERVALS.
     Route: 050
  4. BACLOFEN [Concomitant]
     Active Substance: BACLOFEN
     Indication: Product used for unknown indication
     Dosage: ONE IN THE MORNING, ONE IN THE EVENING, AND ONE AT BEDTIME
     Route: 050
  5. VESICARE [Concomitant]
     Active Substance: SOLIFENACIN SUCCINATE
     Indication: Product used for unknown indication
     Dosage: ONE IN THE MORNING.
     Route: 050
  6. DITROPAN [Concomitant]
     Active Substance: OXYBUTYNIN CHLORIDE
     Indication: Product used for unknown indication
     Dosage: ONE TABLET IN THE MORNING AND ONE IN THE EVENING.
     Route: 050
  7. ESCITALOPRAM OXALATE [Concomitant]
     Active Substance: ESCITALOPRAM OXALATE
     Indication: Product used for unknown indication
     Dosage: ONE TABLET IN THE EVENING
     Route: 050
  8. LYRICA [Concomitant]
     Active Substance: PREGABALIN
     Indication: Product used for unknown indication
     Dosage: AT BEDTIME
     Route: 050
  9. RIVOTRIL [Concomitant]
     Active Substance: CLONAZEPAM
     Indication: Product used for unknown indication
     Dosage: THREE DROPS AT BEDTIME.
     Route: 050
  10. CHOLECALCIFEROL [Concomitant]
     Active Substance: CHOLECALCIFEROL
     Indication: Product used for unknown indication
     Route: 050
  11. FERROUS SULFATE\FOLIC ACID\GASTRIC MUCIN [Concomitant]
     Active Substance: FERROUS SULFATE\FOLIC ACID\GASTRIC MUCIN
     Indication: Product used for unknown indication
     Dosage: WELL TOLERATED BY THE DIGESTIVE SYSTEM
     Route: 050

REACTIONS (1)
  - Pseudomonal sepsis [Unknown]

NARRATIVE: CASE EVENT DATE: 20240901
